FAERS Safety Report 7735405-4 (Version None)
Quarter: 2011Q3

REPORT INFORMATION
  Report Type: 
  Country: None (occurrence: None)
  Receive Date: 20110907
  Receipt Date: 20110902
  Transmission Date: 20111222
  Serious: Yes (Hospitalization)
  Sender: FDA-Public Use
  Company Number: IT-TEVA-299197ISR

PATIENT
  Sex: Male

DRUGS (3)
  1. CISPLATIN [Suspect]
     Indication: NASOPHARYNGEAL CANCER
     Dosage: 140 MILLIGRAM;
     Route: 042
     Dates: start: 20110809, end: 20110809
  2. TAXOTERE [Suspect]
     Indication: NASOPHARYNGEAL CANCER
     Dosage: 140 MILLIGRAM;
     Route: 042
     Dates: start: 20110809, end: 20110809
  3. FLUOROURACIL [Suspect]
     Indication: NASOPHARYNGEAL CANCER
     Dosage: 6000 MILLIGRAM;
     Route: 042
     Dates: start: 20110809, end: 20110809

REACTIONS (2)
  - LEUKOPENIA [None]
  - HYPERPYREXIA [None]
